FAERS Safety Report 19652927 (Version 1)
Quarter: 2021Q3

REPORT INFORMATION
  Report Type: Spontaneous
  Country: US (occurrence: US)
  Receive Date: 20210803
  Receipt Date: 20210803
  Transmission Date: 20211014
  Serious: No
  Sender: FDA-Public Use
  Company Number: US-TOLMAR, INC.-21US027237

PATIENT
  Age: 12 Year
  Sex: Female

DRUGS (2)
  1. FENSOLVI [Suspect]
     Active Substance: LEUPROLIDE ACETATE
     Dosage: UNK
     Route: 058
     Dates: start: 202009
  2. FENSOLVI [Suspect]
     Active Substance: LEUPROLIDE ACETATE
     Indication: PRECOCIOUS PUBERTY
     Dosage: UNK
     Route: 058
     Dates: start: 20210318

REACTIONS (6)
  - Purulent discharge [Recovering/Resolving]
  - SARS-CoV-2 test positive [Unknown]
  - Injection site abscess [Recovering/Resolving]
  - Bloody discharge [Recovering/Resolving]
  - Impaired healing [Recovering/Resolving]
  - Injection site discomfort [Recovered/Resolved]

NARRATIVE: CASE EVENT DATE: 202009
